FAERS Safety Report 16344275 (Version 2)
Quarter: 2019Q2

REPORT INFORMATION
  Report Type: Report from Study
  Country: KR (occurrence: KR)
  Receive Date: 20190522
  Receipt Date: 20190605
  Transmission Date: 20190711
  Serious: Yes (Hospitalization, Other)
  Sender: FDA-Public Use
  Company Number: KR-ASTELLAS-2019US021411

PATIENT
  Age: 76 Year
  Sex: Female
  Weight: 58.9 kg

DRUGS (5)
  1. AMLODIPINE [Concomitant]
     Active Substance: AMLODIPINE BESYLATE
     Indication: PRODUCT USED FOR UNKNOWN INDICATION
     Dosage: UNK, UNKNOWN FREQ.
     Route: 065
     Dates: start: 2016
  2. ERLOTINIB [Suspect]
     Active Substance: ERLOTINIB
     Indication: NON-SMALL CELL LUNG CANCER STAGE IV
     Dosage: 150 MG, ONCE DAILY (MOST RECENT DOSE ADMIN PRIOR TO AE/SAE ONSET:01/MAY/2019)
     Route: 048
     Dates: start: 20190201, end: 20190502
  3. BEVACIZUMAB. [Suspect]
     Active Substance: BEVACIZUMAB
     Indication: NON-SMALL CELL LUNG CANCER STAGE IV
     Dosage: 15 MG/KG, EVERY 3 WEEKS (DATE OF MOST RECENT DOSE ADMIN PRIOR TO AE/SAE ONSET:26/APR/2019)
     Route: 042
     Dates: start: 20190201
  4. ERLOTINIB [Suspect]
     Active Substance: ERLOTINIB
     Route: 048
     Dates: start: 20190508
  5. ERLOTINIB [Suspect]
     Active Substance: ERLOTINIB
     Route: 048
     Dates: start: 20190515

REACTIONS (1)
  - Febrile neutropenia [Recovered/Resolved]

NARRATIVE: CASE EVENT DATE: 20190427
